FAERS Safety Report 23366908 (Version 1)
Quarter: 2024Q1

REPORT INFORMATION
  Report Type: Spontaneous
  Country: JP (occurrence: JP)
  Receive Date: 20240104
  Receipt Date: 20240104
  Transmission Date: 20240410
  Serious: Yes (Other)
  Sender: FDA-Public Use
  Company Number: JP-Eisai-202312184_LEN-EC_P_1

PATIENT
  Sex: Female

DRUGS (2)
  1. LENVIMA [Suspect]
     Active Substance: LENVATINIB
     Indication: Endometrial cancer
     Dosage: UNKNOWN DOSE AND FREQUENCY
     Route: 048
  2. KEYTRUDA [Concomitant]
     Active Substance: PEMBROLIZUMAB
     Indication: Endometrial cancer
     Dosage: UNKNOWN DOSE AND FREQUENCY
     Route: 041

REACTIONS (8)
  - Left ventricular failure [Unknown]
  - Hypertension [Unknown]
  - Platelet count decreased [Unknown]
  - Decreased appetite [Unknown]
  - Liver disorder [Unknown]
  - Arthritis [Unknown]
  - Malaise [Unknown]
  - Adrenocorticotropic hormone deficiency [Unknown]
